FAERS Safety Report 10590757 (Version 1)
Quarter: 2014Q4

REPORT INFORMATION
  Report Type: Spontaneous
  Country: FR (occurrence: FR)
  Receive Date: 20141118
  Receipt Date: 20141118
  Transmission Date: 20150529
  Serious: Yes (Hospitalization)
  Sender: FDA-Public Use
  Company Number: FR-BRISTOL-MYERS SQUIBB COMPANY-21595970

PATIENT
  Age: 61 Year
  Sex: Female

DRUGS (8)
  1. METHOTREXATE [Concomitant]
     Active Substance: METHOTREXATE
  2. INEXIUM [Concomitant]
     Active Substance: ESOMEPRAZOLE
  3. CORTANCYL [Concomitant]
     Active Substance: PREDNISONE
  4. LEXOMIL [Concomitant]
     Active Substance: BROMAZEPAM
  5. ORENCIA [Suspect]
     Active Substance: ABATACEPT
     Indication: RHEUMATOID ARTHRITIS
     Dosage: SWITCHED TO IV ROUTE
     Route: 058
     Dates: start: 201409, end: 20141001
  6. AMLOR [Concomitant]
     Active Substance: AMLODIPINE BESYLATE
  7. SPECIAFOLDINE [Concomitant]
     Active Substance: FOLIC ACID
  8. TERCIAN [Concomitant]
     Active Substance: CYAMEMAZINE

REACTIONS (3)
  - Dizziness [Recovered/Resolved]
  - Face oedema [Recovered/Resolved]
  - Headache [Recovered/Resolved]

NARRATIVE: CASE EVENT DATE: 20141001
